FAERS Safety Report 7961642-X (Version None)
Quarter: 2011Q4

REPORT INFORMATION
  Report Type: 
  Country: None (occurrence: None)
  Receive Date: 20111202
  Receipt Date: 20111202
  Transmission Date: 20120403
  Serious: Yes (Other)
  Sender: FDA-Public Use
  Company Number: None

PATIENT
  Age: 83 Year
  Sex: Female
  Weight: 86.637 kg

DRUGS (2)
  1. LISINOPRIL [Suspect]
     Indication: HYPERTENSION
     Dosage: 10 MG  B.I.D. ORAL 047
     Route: 048
     Dates: start: 20111001
  2. QUINAPRIL [Suspect]
     Indication: TYPE 2 DIABETES MELLITUS
     Dosage: 10 MG BID 047

REACTIONS (2)
  - SKIN EXFOLIATION [None]
  - BLOOD PRESSURE INADEQUATELY CONTROLLED [None]
